FAERS Safety Report 18156689 (Version 2)
Quarter: 2020Q3

REPORT INFORMATION
  Report Type: Report from Study
  Country: None (occurrence: ES)
  Receive Date: 20200817
  Receipt Date: 20200820
  Transmission Date: 20201103
  Serious: Yes (Other)
  Sender: FDA-Public Use
  Company Number: ES-ABBVIE-20K-144-3520793-00

PATIENT
  Age: 66 Year
  Sex: Female

DRUGS (3)
  1. DUODOPA [Suspect]
     Active Substance: CARBIDOPA\LEVODOPA
     Indication: PARKINSON^S DISEASE
     Route: 050
     Dates: start: 20130725, end: 20200807
  2. DUODOPA [Suspect]
     Active Substance: CARBIDOPA\LEVODOPA
     Dosage: LOWERED CONTINUOUS DOSE BY 0.2 ML/H
     Route: 050
     Dates: start: 20200807, end: 20200811
  3. DUODOPA [Suspect]
     Active Substance: CARBIDOPA\LEVODOPA
     Dosage: INCREASE THE CONTINUOUS DOSE 0.1 ML/H
     Route: 050
     Dates: start: 20200811

REACTIONS (5)
  - Therapeutic product effect incomplete [Recovering/Resolving]
  - Tremor [Recovered/Resolved]
  - Dyskinesia [Recovering/Resolving]
  - Cataract [Recovered/Resolved]
  - Nervousness [Recovered/Resolved]

NARRATIVE: CASE EVENT DATE: 2020
